FAERS Safety Report 7727771-0 (Version None)
Quarter: 2011Q3

REPORT INFORMATION
  Report Type: 
  Country: None (occurrence: None)
  Receive Date: 20110902
  Receipt Date: 20101207
  Transmission Date: 20111222
  Serious: Yes (Hospitalization)
  Sender: FDA-Public Use
  Company Number: JP-SANTEN INC.-INC-11-000030

PATIENT
  Sex: Male

DRUGS (4)
  1. LEVOFLOXACIN [Suspect]
     Indication: EYE INFECTION
     Route: 047
     Dates: start: 20100210
  2. CEFCAPENE PIVOXIL HYDROCHLORIDE [Suspect]
     Route: 048
     Dates: start: 20100216
  3. DICLOFENAC SODIUM [Concomitant]
     Dates: start: 20100210
  4. CEFCAPENE PIVOXIL HYDROCHLORIDE [Suspect]
     Route: 048
     Dates: start: 20100209, end: 20100216

REACTIONS (1)
  - DIARRHOEA [None]
